FAERS Safety Report 8105595-2 (Version None)
Quarter: 2012Q1

REPORT INFORMATION
  Report Type: 
  Country: None (occurrence: None)
  Receive Date: 20120201
  Receipt Date: 20120116
  Transmission Date: 20120608
  Serious: Yes (Hospitalization)
  Sender: FDA-Public Use
  Company Number: NL-MEDIMMUNE-MEDI-0014662

PATIENT
  Sex: Female
  Weight: 3.58 kg

DRUGS (1)
  1. SYNAGIS [Suspect]
     Indication: PREMATURE BABY
     Route: 030
     Dates: start: 20111015, end: 20111220

REACTIONS (3)
  - GROWTH RETARDATION [None]
  - COUGH [None]
  - PYREXIA [None]
